FAERS Safety Report 22266029 (Version 2)
Quarter: 2023Q2

REPORT INFORMATION
  Report Type: Spontaneous
  Country: CH (occurrence: CH)
  Receive Date: 20230428
  Receipt Date: 20230526
  Transmission Date: 20230721
  Serious: No
  Sender: FDA-Public Use
  Company Number: CH-TEVA-2023-CH-2881385

PATIENT

DRUGS (1)
  1. AMOXICILLIN\CLAVULANATE POTASSIUM [Suspect]
     Active Substance: AMOXICILLIN\CLAVULANATE POTASSIUM
     Indication: Product used for unknown indication
     Dosage: 457MG/5ML?80-11.4, MG/ML-MG/ML
     Route: 048

REACTIONS (2)
  - Incorrect dose administered [Unknown]
  - Product dispensing error [Unknown]
